FAERS Safety Report 25990657 (Version 1)
Quarter: 2025Q4

REPORT INFORMATION
  Report Type: Report from Study
  Country: US (occurrence: None)
  Receive Date: 20251103
  Receipt Date: 20251103
  Transmission Date: 20260119
  Serious: Yes (Disabling)
  Sender: UCB
  Company Number: US-UCBSA-2025068012

PATIENT
  Age: 76 Year

DRUGS (1)
  1. BIMEKIZUMAB [Suspect]
     Active Substance: BIMEKIZUMAB
     Indication: Psoriasis
     Dosage: 320 MILLIGRAM, EV 8 WEEKS

REACTIONS (2)
  - Femur fracture [Unknown]
  - Product dose omission issue [Unknown]
